FAERS Safety Report 18944240 (Version 1)
Quarter: 2021Q1

REPORT INFORMATION
  Report Type: Spontaneous
  Country: US (occurrence: US)
  Receive Date: 20210226
  Receipt Date: 20210226
  Transmission Date: 20210420
  Serious: No
  Sender: FDA-Public Use
  Company Number: None

PATIENT
  Age: 53 Year
  Sex: Female

DRUGS (2)
  1. REMDESIVIR. [Suspect]
     Active Substance: REMDESIVIR
     Indication: COVID-19
     Dates: start: 20210208, end: 20210211
  2. CARVEDILOL. [Concomitant]
     Active Substance: CARVEDILOL

REACTIONS (7)
  - Left ventricular hypertrophy [None]
  - Headache [None]
  - Hypoaesthesia [None]
  - Sinus bradycardia [None]
  - Paraesthesia [None]
  - Hypoaesthesia oral [None]
  - Sluggishness [None]
